FAERS Safety Report 7411294-2 (Version None)
Quarter: 2011Q2

REPORT INFORMATION
  Report Type: 
  Country: None (occurrence: None)
  Receive Date: 20110413
  Receipt Date: 20100624
  Transmission Date: 20111010
  Serious: Yes (Other)
  Sender: FDA-Public Use
  Company Number: US-BRISTOL-MYERS SQUIBB COMPANY-15122401

PATIENT
  Age: 57 Year
  Sex: Male

DRUGS (2)
  1. IRINOTECAN HCL [Suspect]
     Indication: RECTAL CANCER
     Dosage: CPT-11:250 UNIT NOS; TOTAL DOSE WITH ERBITUX 760 UNITS NOS
     Route: 042
     Dates: start: 20100405
  2. ERBITUX [Suspect]
     Indication: RECTAL CANCER
     Dosage: ERBITUX: 250 UNITS NOS;TOTAL DOSE WITH CPT-11 760 UNITS NOS
     Route: 042
     Dates: start: 20100405

REACTIONS (1)
  - ANAPHYLACTIC REACTION [None]
